FAERS Safety Report 7321264 (Version 7)
Quarter: 2019Q3

REPORT INFORMATION
  Report Type: Spontaneous
  Country: US (occurrence: US)
  Receive Date: 20100316
  Receipt Date: 20190905
  Transmission Date: 20191005
  Serious: Yes (Hospitalization, Disabling, Other)
  Sender: FDA-Public Use
  Company Number: US-ELI_LILLY_AND_COMPANY-US201003002526

PATIENT
  Sex: Male

DRUGS (12)
  1. OLANZAPINE. [Suspect]
     Active Substance: OLANZAPINE
     Indication: SCHIZOPHRENIA
     Dosage: UNK, UNKNOWN
     Route: 065
  2. ZYPREXA [Suspect]
     Active Substance: OLANZAPINE
     Indication: SCHIZOPHRENIA
     Dosage: 40 MG, BID
     Route: 065
     Dates: start: 1997
  3. OLANZAPINE. [Suspect]
     Active Substance: OLANZAPINE
     Indication: VICTIM OF SEXUAL ABUSE
  4. OLANZAPINE. [Suspect]
     Active Substance: OLANZAPINE
     Indication: VICTIM OF CRIME
  5. HALDOL [Concomitant]
     Active Substance: HALOPERIDOL
     Indication: PRODUCT USED FOR UNKNOWN INDICATION
  6. PROLEXA                            /01588502/ [Concomitant]
     Indication: PRODUCT USED FOR UNKNOWN INDICATION
     Dosage: UNK, UNKNOWN
     Route: 065
  7. ZYPREXA [Suspect]
     Active Substance: OLANZAPINE
     Indication: PSYCHOLOGICAL ABUSE
  8. PAXIL [Concomitant]
     Active Substance: PAROXETINE HYDROCHLORIDE
     Indication: PRODUCT USED FOR UNKNOWN INDICATION
     Dosage: UNK, UNKNOWN
     Route: 065
  9. OLANZAPINE. [Suspect]
     Active Substance: OLANZAPINE
     Indication: PSYCHOLOGICAL ABUSE
  10. COGENTIN [Concomitant]
     Active Substance: BENZTROPINE MESYLATE
     Indication: PRODUCT USED FOR UNKNOWN INDICATION
     Dosage: UNK, UNKNOWN
     Route: 065
  11. ZYPREXA [Suspect]
     Active Substance: OLANZAPINE
     Indication: VICTIM OF CHILD ABUSE
  12. ZYPREXA [Suspect]
     Active Substance: OLANZAPINE
     Indication: VICTIM OF CRIME

REACTIONS (40)
  - Congenital anomaly [Unknown]
  - Seizure [Not Recovered/Not Resolved]
  - Amnesia [Unknown]
  - Syncope [Not Recovered/Not Resolved]
  - Thrombosis [Unknown]
  - Skin lesion [Not Recovered/Not Resolved]
  - Impaired healing [Not Recovered/Not Resolved]
  - Peripheral swelling [Not Recovered/Not Resolved]
  - Seasonal allergy [Unknown]
  - Head injury [Unknown]
  - Intentional self-injury [Unknown]
  - Suicide attempt [Unknown]
  - Foaming at mouth [Unknown]
  - Alopecia [Not Recovered/Not Resolved]
  - Weight increased [Unknown]
  - Viral infection [Unknown]
  - Feeling abnormal [Unknown]
  - Limb injury [Unknown]
  - Blindness [Not Recovered/Not Resolved]
  - Haemorrhage [Unknown]
  - Skin discolouration [Unknown]
  - Blood test abnormal [Unknown]
  - Pollakiuria [Not Recovered/Not Resolved]
  - Somnolence [Unknown]
  - Cerebrovascular accident [Not Recovered/Not Resolved]
  - Sexually transmitted disease [Not Recovered/Not Resolved]
  - Abnormal behaviour [Unknown]
  - Prescribed overdose [Not Recovered/Not Resolved]
  - Coma [Unknown]
  - Vision blurred [Not Recovered/Not Resolved]
  - Sleep disorder [Unknown]
  - Weight decreased [Unknown]
  - Tremor [Unknown]
  - Increased appetite [Unknown]
  - Disturbance in attention [Unknown]
  - Aggression [Unknown]
  - Suicidal ideation [Unknown]
  - Constipation [Not Recovered/Not Resolved]
  - Speech disorder [Unknown]
  - Road traffic accident [Unknown]

NARRATIVE: CASE EVENT DATE: 1999
